FAERS Safety Report 10010733 (Version 1)
Quarter: 2014Q1

REPORT INFORMATION
  Report Type: Spontaneous
  Country: US (occurrence: US)
  Receive Date: 20140314
  Receipt Date: 20140314
  Transmission Date: 20141002
  Serious: Yes (Other)
  Sender: FDA-Public Use
  Company Number: US-JNJFOC-20140304889

PATIENT
  Age: 51 Year
  Sex: Male
  Weight: 90.72 kg

DRUGS (8)
  1. XARELTO [Suspect]
     Indication: PULMONARY EMBOLISM
     Route: 048
     Dates: start: 201308
  2. METOPROLOL [Concomitant]
     Indication: BLOOD PRESSURE INCREASED
     Route: 048
     Dates: start: 201104
  3. LOSARTAN [Concomitant]
     Indication: BLOOD PRESSURE INCREASED
     Route: 048
     Dates: start: 201104
  4. AMLODIPINE [Concomitant]
     Indication: BLOOD PRESSURE INCREASED
     Route: 048
     Dates: start: 2011
  5. LAMICTAL [Concomitant]
     Indication: CONVULSION
     Route: 048
     Dates: start: 201104
  6. SYNTHROID [Concomitant]
     Indication: THYROID DISORDER
     Route: 048
     Dates: start: 2009
  7. LYRICA [Concomitant]
     Indication: NEURALGIA
     Dates: start: 201309
  8. FLEXERIL [Concomitant]
     Indication: MUSCLE RELAXANT THERAPY
     Dosage: UPTO 3
     Route: 048
     Dates: start: 201308

REACTIONS (4)
  - Nephrolithiasis [Recovered/Resolved]
  - Neuralgia [Not Recovered/Not Resolved]
  - Chest discomfort [Not Recovered/Not Resolved]
  - Vision blurred [Not Recovered/Not Resolved]
